FAERS Safety Report 13208207 (Version 1)
Quarter: 2017Q1

REPORT INFORMATION
  Report Type: Spontaneous
  Country: US (occurrence: US)
  Receive Date: 20170209
  Receipt Date: 20170209
  Transmission Date: 20170428
  Serious: Yes (Hospitalization)
  Sender: FDA-Public Use
  Company Number: US-VIFOR (INTERNATIONAL) INC.-VIT-2017-01081

PATIENT
  Sex: Female

DRUGS (17)
  1. DOCUSATE SODIUM. [Concomitant]
     Active Substance: DOCUSATE SODIUM
  2. LEVEMIR [Concomitant]
     Active Substance: INSULIN DETEMIR
  3. RENE-VITE [Concomitant]
  4. RENVELA [Concomitant]
     Active Substance: SEVELAMER CARBONATE
  5. TRADJENTA [Concomitant]
     Active Substance: LINAGLIPTIN
  6. CARVEDILOL. [Concomitant]
     Active Substance: CARVEDILOL
  7. PARACETAMOL [Concomitant]
     Active Substance: ACETAMINOPHEN
  8. HUMALOG MIX50/50 [Concomitant]
     Active Substance: INSULIN LISPRO
  9. NIFEDIPINE. [Concomitant]
     Active Substance: NIFEDIPINE
  10. SERTRALINE HYDROCHLORIDE. [Concomitant]
     Active Substance: SERTRALINE HYDROCHLORIDE
  11. ERGOCALCIFEROL. [Concomitant]
     Active Substance: ERGOCALCIFEROL
  12. CALCIUM ACETATE. [Concomitant]
     Active Substance: CALCIUM ACETATE
  13. CRESTOR [Concomitant]
     Active Substance: ROSUVASTATIN CALCIUM
  14. FUROSEMIDE. [Concomitant]
     Active Substance: FUROSEMIDE
  15. LANTUS [Concomitant]
     Active Substance: INSULIN GLARGINE
  16. SENSIPAR [Concomitant]
     Active Substance: CINACALCET HYDROCHLORIDE
  17. VELTASSA [Suspect]
     Active Substance: PATIROMER
     Indication: HYPERKALAEMIA
     Dates: start: 20160708

REACTIONS (2)
  - Dialysis [Unknown]
  - Fluid overload [Unknown]
